FAERS Safety Report 23757399 (Version 1)
Quarter: 2024Q2

REPORT INFORMATION
  Report Type: Spontaneous
  Country: BR (occurrence: BR)
  Receive Date: 20240418
  Receipt Date: 20240418
  Transmission Date: 20240716
  Serious: Yes (Hospitalization)
  Sender: FDA-Public Use
  Company Number: BR-BAYER-2024A055213

PATIENT
  Age: 23 Year
  Sex: Female

DRUGS (11)
  1. KYLEENA [Suspect]
     Active Substance: LEVONORGESTREL
     Dosage: 17.5?G/DAY
     Route: 015
  2. NIVUX [Concomitant]
     Indication: Pelvic pain
     Dosage: UNK
     Dates: start: 20240410
  3. NIVUX [Concomitant]
     Indication: Abdominal pain
  4. KETOROLAC [Concomitant]
     Active Substance: KETOROLAC TROMETHAMINE
     Indication: Pelvic pain
     Dosage: UNK
     Dates: start: 20240410
  5. KETOROLAC [Concomitant]
     Active Substance: KETOROLAC TROMETHAMINE
     Indication: Abdominal pain
  6. BUTYLSCOPOLAMINE BROMIDE\METAMIZOLE SODIUM [Concomitant]
     Active Substance: BUTYLSCOPOLAMINE BROMIDE\METAMIZOLE SODIUM
     Indication: Pelvic pain
     Dosage: UNK
     Dates: start: 20240410
  7. BUTYLSCOPOLAMINE BROMIDE\METAMIZOLE SODIUM [Concomitant]
     Active Substance: BUTYLSCOPOLAMINE BROMIDE\METAMIZOLE SODIUM
     Indication: Abdominal pain
  8. DIPYRONE [Concomitant]
     Active Substance: DIPYRONE
     Indication: Pelvic pain
     Dosage: UNK
     Dates: start: 20240410
  9. DIPYRONE [Concomitant]
     Active Substance: DIPYRONE
     Indication: Abdominal pain
  10. ACETAMINOPHEN\TRAMADOL [Concomitant]
     Active Substance: ACETAMINOPHEN\TRAMADOL
     Indication: Pelvic pain
     Dosage: UNK
     Dates: start: 20240410
  11. ACETAMINOPHEN\TRAMADOL [Concomitant]
     Active Substance: ACETAMINOPHEN\TRAMADOL
     Indication: Abdominal pain

REACTIONS (1)
  - Abdominal distension [Not Recovered/Not Resolved]

NARRATIVE: CASE EVENT DATE: 20240413
